FAERS Safety Report 10912974 (Version 2)
Quarter: 2015Q4

REPORT INFORMATION
  Report Type: Spontaneous
  Country: DE (occurrence: DE)
  Receive Date: 20150310
  Receipt Date: 20151218
  Transmission Date: 20160304
  Serious: Yes (Other)
  Sender: FDA-Public Use
  Company Number: DE-H14001-15-00376

PATIENT
  Age: 64 Year
  Sex: Male
  Weight: 67 kg

DRUGS (3)
  1. CEFOTAXIME [Suspect]
     Active Substance: CEFOTAXIME SODIUM
     Indication: PNEUMONIA
     Route: 042
     Dates: start: 20150116, end: 20150126
  2. ABRAXANE [Suspect]
     Active Substance: PACLITAXEL
     Indication: PANCREATIC CARCINOMA METASTATIC
     Route: 042
     Dates: start: 20150116
  3. GEMCITABINE [Suspect]
     Active Substance: GEMCITABINE\GEMCITABINE HYDROCHLORIDE
     Indication: PANCREATIC CARCINOMA METASTATIC
     Route: 042
     Dates: start: 20150116

REACTIONS (6)
  - Pruritus [Recovering/Resolving]
  - Impaired healing [Unknown]
  - Skin exfoliation [Unknown]
  - Erythema [Recovering/Resolving]
  - Dermatitis exfoliative [Recovering/Resolving]
  - Dry skin [Unknown]

NARRATIVE: CASE EVENT DATE: 20150116
